FAERS Safety Report 4538195-1 (Version None)
Quarter: 2004Q4

REPORT INFORMATION
  Report Type: 
  Country: None (occurrence: None)
  Receive Date: 20041221
  Receipt Date: 20041210
  Transmission Date: 20050328
  Serious: Yes (Hospitalization)
  Sender: FDA-Public Use
  Company Number: 2004110155

PATIENT
  Age: 8 Year
  Sex: Male

DRUGS (4)
  1. ZITHROMAX [Suspect]
     Indication: ILL-DEFINED DISORDER
     Dosage: 250 MG (250 MG, 1 IN 1 D), ORAL
     Route: 048
     Dates: start: 20020801, end: 20041124
  2. ZITHROMAX [Suspect]
     Indication: UPPER RESPIRATORY TRACT INFLAMMATION
     Dosage: 250 MG (250 MG, 1 IN 1 D), ORAL
     Route: 048
     Dates: start: 20020801, end: 20041124
  3. CARBOCISTEINE (CARBOCISTEINE) [Concomitant]
  4. ACETAMINOPHEN [Concomitant]

REACTIONS (7)
  - ABDOMINAL PAIN [None]
  - CHEST PAIN [None]
  - COUGH [None]
  - DRUG ERUPTION [None]
  - ERYTHEMA MULTIFORME [None]
  - HYPOXIA [None]
  - URTICARIA [None]
